FAERS Safety Report 17043928 (Version 1)
Quarter: 2019Q4

REPORT INFORMATION
  Report Type: Spontaneous
  Country: US (occurrence: US)
  Receive Date: 20191118
  Receipt Date: 20191118
  Transmission Date: 20200122
  Serious: No
  Sender: FDA-Public Use
  Company Number: US-CELGENEUS-USA-20191103795

PATIENT
  Age: 68 Year
  Sex: Female

DRUGS (1)
  1. OTEZLA [Suspect]
     Active Substance: APREMILAST
     Indication: PSORIATIC ARTHROPATHY
     Dosage: TITRATION PACK: 10/20/30 MILLIGRAM
     Route: 048
     Dates: start: 20191014

REACTIONS (6)
  - Diarrhoea [Not Recovered/Not Resolved]
  - Bone pain [Unknown]
  - Headache [Not Recovered/Not Resolved]
  - Myalgia [Unknown]
  - Arthralgia [Unknown]
  - Nausea [Not Recovered/Not Resolved]

NARRATIVE: CASE EVENT DATE: 20191101
